FAERS Safety Report 8062280-3 (Version None)
Quarter: 2011Q4

REPORT INFORMATION
  Report Type: 
  Country: None (occurrence: None)
  Receive Date: 20111220
  Receipt Date: 20111019
  Transmission Date: 20120403
  Serious: Yes (Other)
  Sender: FDA-Public Use
  Company Number: 2011000040

PATIENT

DRUGS (1)
  1. ACTIQ [Suspect]
     Dosage: BU
     Route: 002

REACTIONS (2)
  - DRUG DEPENDENCE [None]
  - DRUG PRESCRIBING ERROR [None]
